FAERS Safety Report 6013470-2 (Version None)
Quarter: 2008Q4

REPORT INFORMATION
  Report Type: 
  Country: None (occurrence: None)
  Receive Date: 20081219
  Receipt Date: 20081217
  Transmission Date: 20090506
  Serious: Yes (Hospitalization)
  Sender: FDA-Public Use
  Company Number: FR-ASTRAZENECA-2008CG01867

PATIENT
  Age: 25 Year
  Sex: Female

DRUGS (3)
  1. ENTOCORT EC [Suspect]
     Indication: CROHN'S DISEASE
     Route: 048
     Dates: start: 20080101, end: 20080101
  2. FIVASA [Suspect]
     Indication: CROHN'S DISEASE
     Route: 048
     Dates: start: 20080101, end: 20080101
  3. PENTASA [Suspect]
     Indication: CROHN'S DISEASE
     Route: 065
     Dates: start: 20080101, end: 20080101

REACTIONS (1)
  - DRUG INTOLERANCE [None]
